FAERS Safety Report 5443796-2 (Version None)
Quarter: 2007Q3

REPORT INFORMATION
  Report Type: 
  Country: None (occurrence: None)
  Receive Date: 20070905
  Receipt Date: 20070824
  Transmission Date: 20080115
  Serious: No
  Sender: FDA-Public Use
  Company Number: FR-PFIZER INC-2007061437

PATIENT
  Sex: Male
  Weight: 77 kg

DRUGS (3)
  1. LYRICA [Suspect]
     Indication: PAIN
     Dosage: DAILY DOSE:150MG
     Route: 048
  2. NORSET [Interacting]
     Route: 048
  3. ZYPREXA [Concomitant]
     Route: 048

REACTIONS (3)
  - DRUG INTERACTION [None]
  - MUSCLE CONTRACTURE [None]
  - TENDONITIS [None]
